FAERS Safety Report 6116070-9 (Version None)
Quarter: 2009Q1

REPORT INFORMATION
  Report Type: 
  Country: None (occurrence: None)
  Receive Date: 20090314
  Receipt Date: 20081211
  Transmission Date: 20090719
  Serious: Yes (Other)
  Sender: FDA-Public Use
  Company Number: US-ABBOTT-08P-163-0492496-00

PATIENT
  Sex: Female
  Weight: 64.922 kg

DRUGS (3)
  1. HUMIRA [Suspect]
     Indication: CROHN'S DISEASE
     Dates: start: 20080925
  2. HUMIRA [Suspect]
     Indication: COLITIS
  3. MESALAZINE [Concomitant]
     Indication: CROHN'S DISEASE

REACTIONS (1)
  - BARTHOLIN'S ABSCESS [None]
